FAERS Safety Report 4820352-8 (Version None)
Quarter: 2005Q4

REPORT INFORMATION
  Report Type: 
  Country: None (occurrence: None)
  Receive Date: 20051104
  Receipt Date: 20051025
  Transmission Date: 20060501
  Serious: Yes (Hospitalization)
  Sender: FDA-Public Use
  Company Number: 2005CG01779

PATIENT
  Age: 75 Year
  Sex: Female

DRUGS (11)
  1. MOPRAL [Suspect]
     Route: 048
  2. SELOKEN LP [Suspect]
     Route: 048
  3. CORTANCYL [Suspect]
     Route: 048
  4. ARAVA [Suspect]
     Route: 048
  5. STABLON [Suspect]
     Route: 048
  6. VASTEN [Suspect]
     Route: 048
  7. SOLU-MEDROL [Suspect]
  8. COUMADIN [Suspect]
  9. SEGLOR [Suspect]
  10. ALLOPURINOL [Suspect]
  11. STILNOX [Suspect]

REACTIONS (5)
  - ANAEMIA MACROCYTIC [None]
  - COLITIS [None]
  - DIARRHOEA [None]
  - DIVERTICULUM INTESTINAL [None]
  - RECTAL HAEMORRHAGE [None]
